FAERS Safety Report 13060511 (Version 1)
Quarter: 2016Q4

REPORT INFORMATION
  Report Type: Spontaneous
  Country: FR (occurrence: FR)
  Receive Date: 20161224
  Receipt Date: 20161224
  Transmission Date: 20170207
  Serious: Yes (Disabling)
  Sender: FDA-Public Use
  Company Number: FR-AMGEN-FRASP2016155130

PATIENT
  Age: 30 Year
  Sex: Male

DRUGS (3)
  1. ENBREL [Suspect]
     Active Substance: ETANERCEPT
     Dosage: 1 DF, CYCLIC (EVERY 6 WEEKS)
     Route: 058
  2. ENBREL [Suspect]
     Active Substance: ETANERCEPT
     Indication: ANKYLOSING SPONDYLITIS
     Dosage: 1 DF, CYCLIC (EVERY 2 WEEKS)
     Route: 058
     Dates: start: 201106
  3. ENBREL [Suspect]
     Active Substance: ETANERCEPT
     Dosage: 1 DF, MONTHLY
     Route: 058

REACTIONS (3)
  - Drug ineffective [Recovered/Resolved]
  - Asthenia [Recovered/Resolved]
  - Product use issue [Unknown]
